FAERS Safety Report 6082586-7 (Version None)
Quarter: 2009Q1

REPORT INFORMATION
  Report Type: 
  Country: None (occurrence: None)
  Receive Date: 20090218
  Receipt Date: 20090209
  Transmission Date: 20090719
  Serious: Yes (Death, Hospitalization)
  Sender: FDA-Public Use
  Company Number: FR-AVENTIS-200910446FR

PATIENT
  Age: 91 Year
  Sex: Male

DRUGS (2)
  1. RIFADIN [Suspect]
     Route: 048
     Dates: start: 20081226, end: 20090114
  2. OFLOCET                            /00731801/ [Suspect]
     Dates: start: 20081226

REACTIONS (3)
  - BLOOD CREATININE INCREASED [None]
  - RENAL FAILURE ACUTE [None]
  - SEPTIC SHOCK [None]
